APPROVED DRUG PRODUCT: KETOCONAZOLE
Active Ingredient: KETOCONAZOLE
Strength: 2%
Dosage Form/Route: AEROSOL, FOAM;TOPICAL
Application: A213601 | Product #001 | TE Code: AB
Applicant: XIROMED PHARMA ESPANA SL
Approved: May 21, 2021 | RLD: No | RS: Yes | Type: RX